FAERS Safety Report 5923065-4 (Version None)
Quarter: 2008Q4

REPORT INFORMATION
  Report Type: 
  Country: None (occurrence: None)
  Receive Date: 20081018
  Receipt Date: 20081008
  Transmission Date: 20090506
  Serious: Yes (Hospitalization, Other)
  Sender: FDA-Public Use
  Company Number: US-PFIZER INC-2008084847

PATIENT
  Sex: Male

DRUGS (3)
  1. TIKOSYN [Suspect]
  2. COREG [Concomitant]
  3. DRUG, UNSPECIFIED [Concomitant]

REACTIONS (2)
  - CARDIAC DISORDER [None]
  - DRUG DOSE OMISSION [None]
